FAERS Safety Report 5806315-4 (Version None)
Quarter: 2008Q3

REPORT INFORMATION
  Report Type: 
  Country: None (occurrence: None)
  Receive Date: 20080702
  Receipt Date: 20070512
  Transmission Date: 20090109
  Serious: No
  Sender: FDA-Public Use
  Company Number: 2007-BP-04400BP

PATIENT
  Sex: Male

DRUGS (42)
  1. MIRAPEX [Suspect]
     Dosage: PO
     Route: 048
  2. PRILOSEC [Concomitant]
  3. SINEMET [Concomitant]
  4. VALIUM [Concomitant]
  5. FLONASE [Concomitant]
  6. ALLEGRA [Concomitant]
  7. RESTORIL [Concomitant]
  8. LOPID [Concomitant]
  9. GLUCOPHAGE [Concomitant]
  10. TOLINASE (TOLAZAMIDE) [Concomitant]
  11. DESIPRAMINE HCL [Concomitant]
  12. TEMAZEPAM [Concomitant]
  13. GLYBUERIDE (GLIBENCLAMIDE) [Concomitant]
  14. GEMFIBROZIL [Concomitant]
  15. VIAGRA [Concomitant]
  16. ACTOS [Concomitant]
  17. PROZAC [Concomitant]
  18. HYDROCHLOROTHIAZIDE [Concomitant]
  19. NPH INSULIN (INSULIN INJECTION, ISOPHANE) [Concomitant]
  20. METFORMIN HCL [Concomitant]
  21. METAMUCIL (PLANTAGO OVATA) [Concomitant]
  22. LIBRAX [Concomitant]
  23. PRINIVIL [Concomitant]
  24. LOVASTATIN [Concomitant]
  25. BENTYL [Concomitant]
  26. LISINOPRIL [Concomitant]
  27. ATENOLOL [Concomitant]
  28. TRICOR [Concomitant]
  29. LOFIBRA (FENOFIBRATE) [Concomitant]
  30. LANTUS [Concomitant]
  31. NOVOLIN (INSULIN) [Concomitant]
  32. NORVASC [Concomitant]
  33. MICONAZOLE NITRATE [Concomitant]
  34. AMITRIPTLINE HYDROCHLORIDE TAB [Concomitant]
  35. TONOCARD (TOCAINIDE HYDROCHLORIDE) [Concomitant]
  36. OMEPRAZOLE [Concomitant]
  37. REGULAR INSULIN [Concomitant]
  38. REQUIP [Concomitant]
  39. ADVAIR DISKUS 100/50 [Concomitant]
  40. ATROVENT [Concomitant]
  41. ALBUTEROL ORAL INHALER (SALBUTAMOL) (AEM) [Concomitant]
  42. NFEDIPINE ER (NIFEDIPINE) (TA) [Concomitant]

REACTIONS (3)
  - EMOTIONAL DISTRESS [None]
  - OBSESSIVE-COMPULSIVE DISORDER [None]
  - PATHOLOGICAL GAMBLING [None]
